FAERS Safety Report 5536952-6 (Version None)
Quarter: 2007Q4

REPORT INFORMATION
  Report Type: 
  Country: None (occurrence: None)
  Receive Date: 20071207
  Receipt Date: 20071128
  Transmission Date: 20080405
  Serious: Yes (Hospitalization, Other)
  Sender: FDA-Public Use
  Company Number: CA-JNJFOC-20070501032

PATIENT
  Sex: Female

DRUGS (5)
  1. INFLIXIMAB [Suspect]
     Route: 042
  2. INFLIXIMAB [Suspect]
     Indication: ARTHRITIS
     Dosage: 400 MG
     Route: 042
  3. METHOTREXATE [Concomitant]
     Indication: ARTHRITIS
     Route: 048
  4. FOLIC ACID [Concomitant]
     Indication: ARTHRITIS
     Route: 048
  5. NAPROXEN [Concomitant]
     Indication: ARTHRITIS
     Route: 048

REACTIONS (1)
  - MENINGIOMA [None]
